FAERS Safety Report 12070605 (Version 1)
Quarter: 2016Q1

REPORT INFORMATION
  Report Type: Spontaneous
  Country: US (occurrence: US)
  Receive Date: 20160211
  Receipt Date: 20160211
  Transmission Date: 20160526
  Serious: No
  Sender: FDA-Public Use
  Company Number: US-SA-2015SA175756

PATIENT
  Age: 74 Year
  Sex: Male

DRUGS (1)
  1. GAVISCON [Suspect]
     Active Substance: ALUMINUM HYDROXIDE\MAGNESIUM CARBONATE
     Indication: GASTROOESOPHAGEAL REFLUX DISEASE
     Dosage: REGULAR STRENGTH
     Route: 065
     Dates: start: 201509, end: 20151014

REACTIONS (2)
  - Blood glucose increased [Recovered/Resolved]
  - Malaise [Recovered/Resolved]
